FAERS Safety Report 24217582 (Version 1)
Quarter: 2024Q3

REPORT INFORMATION
  Report Type: Spontaneous
  Country: US (occurrence: None)
  Receive Date: 20240815
  Receipt Date: 20240815
  Transmission Date: 20241016
  Serious: Yes (Hospitalization, Other)
  Sender: Public
  Company Number: None

PATIENT
  Age: 34 Year
  Sex: Female
  Weight: 58.5 kg

DRUGS (1)
  1. KETAMINE [Suspect]
     Active Substance: KETAMINE
     Indication: Depression
     Dates: start: 20230701, end: 20230901

REACTIONS (4)
  - Abnormal behaviour [None]
  - Shoplifting [None]
  - Impaired driving ability [None]
  - Bipolar disorder [None]

NARRATIVE: CASE EVENT DATE: 20231017
